FAERS Safety Report 9929208 (Version 1)
Quarter: 2014Q1

REPORT INFORMATION
  Report Type: Spontaneous
  Country: US (occurrence: US)
  Receive Date: 20140227
  Receipt Date: 20140227
  Transmission Date: 20141002
  Serious: No
  Sender: FDA-Public Use
  Company Number: US-B.I. PHARMACEUTICALS,INC./RIDGEFIELD-2014-BI-08503BP

PATIENT
  Age: 60 Year
  Sex: Female

DRUGS (1)
  1. MIRAPEX [Suspect]
     Indication: RESTLESS LEGS SYNDROME
     Route: 065

REACTIONS (4)
  - Adverse drug reaction [Unknown]
  - Somnolence [Unknown]
  - Grip strength decreased [Unknown]
  - Gait disturbance [Unknown]
